FAERS Safety Report 6741208-X (Version None)
Quarter: 2010Q2

REPORT INFORMATION
  Report Type: 
  Country: None (occurrence: None)
  Receive Date: 20100524
  Receipt Date: 20100511
  Transmission Date: 20101027
  Serious: Yes (Hospitalization)
  Sender: FDA-Public Use
  Company Number: KV201000152

PATIENT
  Age: 66 Year
  Sex: Female

DRUGS (6)
  1. HYDROQUINONE 4% CREAM WITH SUNSCREENS (SKIN BLEACHIN CREAM) CREAM [Suspect]
     Indication: SKIN DISCOLOURATION
     Dosage: APPLIED TO FACE EVERY NIGHT, TOPICAL
     Route: 061
     Dates: start: 20080801, end: 20081101
  2. LIPITOR [Concomitant]
  3. PROTONIX [Concomitant]
  4. TOPROL-XL [Concomitant]
  5. CALCIUM (CALCIUM) [Concomitant]
  6. MULTIVITAMIN /00831701/ (VITAMINS NOS) [Concomitant]

REACTIONS (4)
  - COUGH [None]
  - EOSINOPHILIC PNEUMONIA [None]
  - OROPHARYNGEAL PAIN [None]
  - TRACHEITIS [None]
